FAERS Safety Report 13907355 (Version 1)
Quarter: 2017Q3

REPORT INFORMATION
  Report Type: Spontaneous
  Country: US (occurrence: US)
  Receive Date: 20170825
  Receipt Date: 20170825
  Transmission Date: 20171127
  Serious: No
  Sender: FDA-Public Use
  Company Number: US-ROCHE-1141380

PATIENT
  Sex: Male
  Weight: 24.2 kg

DRUGS (2)
  1. NUTROPIN AQ [Suspect]
     Active Substance: SOMATROPIN
     Indication: GROWTH HORMONE DEFICIENCY
     Dosage: 0.043 MG/KG/DAY
     Route: 058
     Dates: start: 20000307
  2. NUTROPIN AQ [Suspect]
     Active Substance: SOMATROPIN
     Dosage: 0.041 MG/KG/DAY
     Route: 058
     Dates: start: 20000607

REACTIONS (3)
  - Pyrexia [Unknown]
  - Oropharyngeal pain [Unknown]
  - Sinus congestion [Unknown]
